FAERS Safety Report 8531953 (Version 4)
Quarter: 2012Q4

REPORT INFORMATION
  Report Type: Report from Study
  Country: DE (occurrence: DE)
  Receive Date: 20120426
  Receipt Date: 20120831
  Transmission Date: 20130627
  Serious: Yes (Death, Hospitalization)
  Sender: FDA-Public Use
  Company Number: DE-ACTELION-A-US2012-64512

PATIENT
  Age: 63 Year
  Sex: Female

DRUGS (3)
  1. VENTAVIS [Suspect]
     Indication: PULMONARY ARTERIAL HYPERTENSION
     Dosage: 2.5 ug, Q4HR
     Route: 055
     Dates: start: 20120403
  2. VOLIBRIS [Concomitant]
  3. REVATIO [Concomitant]

REACTIONS (5)
  - Pulmonary arterial hypertension [Fatal]
  - Respiratory disorder [Not Recovered/Not Resolved]
  - Oedema peripheral [Fatal]
  - Condition aggravated [Fatal]
  - Dyspnoea [Unknown]
